FAERS Safety Report 6607581-8 (Version None)
Quarter: 2010Q1

REPORT INFORMATION
  Report Type: 
  Country: None (occurrence: None)
  Receive Date: 20100301
  Receipt Date: 20100215
  Transmission Date: 20100710
  Serious: Yes (Other)
  Sender: FDA-Public Use
  Company Number: US-ELI_LILLY_AND_COMPANY-US201002004639

PATIENT
  Age: 60 Year
  Sex: Female

DRUGS (18)
  1. FORTEO [Suspect]
     Indication: OSTEOPOROSIS
     Dosage: 20 UG, DAILY (1/D)
     Dates: start: 20101216
  2. ATACAND [Concomitant]
     Dosage: 4 MG, DAILY (1/D)
  3. ALOPURINOL                         /00003301/ [Concomitant]
     Dosage: 100 MG, DAILY (1/D)
  4. SYNTHROID [Concomitant]
     Dosage: 75 UG, DAILY (1/D)
  5. SPIRIVA [Concomitant]
     Dosage: 18 UG, DAILY (1/D)
     Route: 055
  6. DILTIAZEM HCL [Concomitant]
     Dosage: 250 MG, DAILY (1/D)
  7. CLONAZEPAM [Concomitant]
     Dosage: 2 MG, EACH EVENING
  8. MIRAPEX [Concomitant]
     Dosage: 1 MG, AS NEEDED
  9. ZEMPLAR [Concomitant]
     Dosage: 1 UG, DAILY (1/D)
  10. WELLBUTRIN SR [Concomitant]
     Dosage: 150 MG, 2/D
  11. OMEPRAZOLE [Concomitant]
     Dosage: 20 MG, DAILY (1/D)
  12. CALTRATE 600 + D [Concomitant]
     Dosage: UNK, DAILY (1/D)
  13. WARFARIN [Concomitant]
     Dosage: 6 MG, DAILY (1/D)
  14. CODEINE SULFATE [Concomitant]
     Indication: BACK PAIN
  15. HYDROCODONE BITARTRATE AND ACETAMINOPHEN [Concomitant]
     Dosage: UNK, DAILY (1/D)
  16. CODEINE SUL TAB [Concomitant]
     Dosage: 30 MG, UNK
  17. METOLAZONE [Concomitant]
     Dosage: 2.5 MG, AS NEEDED
  18. TORSEMIDE [Concomitant]
     Dosage: 80 MG, 2/D

REACTIONS (7)
  - BLOOD CREATININE INCREASED [None]
  - BLOOD UREA INCREASED [None]
  - FEELING ABNORMAL [None]
  - LABORATORY TEST ABNORMAL [None]
  - NAUSEA [None]
  - RENAL FAILURE [None]
  - SOMNOLENCE [None]
